FAERS Safety Report 23683890 (Version 1)
Quarter: 2024Q1

REPORT INFORMATION
  Report Type: Spontaneous
  Country: US (occurrence: None)
  Receive Date: 20240328
  Receipt Date: 20240328
  Transmission Date: 20240410
  Serious: Yes (Life-Threatening, Hospitalization, Other)
  Sender: FDA-Public Use
  Company Number: None

PATIENT
  Age: 44 Year
  Sex: Female
  Weight: 108 kg

DRUGS (5)
  1. HARVONI [Suspect]
     Active Substance: LEDIPASVIR\SOFOSBUVIR
     Indication: Hepatitis C
     Dates: start: 20150322
  2. PEGASYS [Suspect]
     Active Substance: PEGINTERFERON ALFA-2A
  3. RIBAVIRIN [Suspect]
     Active Substance: RIBAVIRIN
  4. VITAMINS [Concomitant]
     Active Substance: VITAMINS
  5. CANNABIS SATIVA SUBSP. INDICA TOP [Concomitant]
     Active Substance: CANNABIS SATIVA SUBSP. INDICA TOP

REACTIONS (4)
  - Exposure during pregnancy [None]
  - Maternal drugs affecting foetus [None]
  - False negative pregnancy test [None]
  - Lack of prenatal care [None]

NARRATIVE: CASE EVENT DATE: 20230715
